FAERS Safety Report 12752405 (Version 1)
Quarter: 2016Q3

REPORT INFORMATION
  Report Type: Spontaneous
  Country: US (occurrence: US)
  Receive Date: 20160915
  Receipt Date: 20160915
  Transmission Date: 20161109
  Serious: Yes (Death)
  Sender: FDA-Public Use
  Company Number: None

PATIENT
  Age: 74 Year
  Sex: Male

DRUGS (2)
  1. TEMOZOLOMIDE 140 MG CAPSULE TEVA [Suspect]
     Active Substance: TEMOZOLOMIDE
     Indication: BRAIN NEOPLASM MALIGNANT
     Dosage: 440 MG DAILY D 1-5 EVERY 28 D ORAL
     Route: 048
     Dates: start: 20160511, end: 20160915
  2. TEMOZOLOMIDE 20 MG CAPSULE TEVA [Suspect]
     Active Substance: TEMOZOLOMIDE

REACTIONS (1)
  - Death [None]

NARRATIVE: CASE EVENT DATE: 20160715
